FAERS Safety Report 8122940-2 (Version None)
Quarter: 2012Q1

REPORT INFORMATION
  Report Type: 
  Country: None (occurrence: None)
  Receive Date: 20120208
  Receipt Date: 20120203
  Transmission Date: 20120608
  Serious: Yes (Death, Other)
  Sender: FDA-Public Use
  Company Number: PHHY2012BR009732

PATIENT
  Age: 18 Year
  Sex: Female

DRUGS (2)
  1. LINEZOLID [Suspect]
  2. SULFAMETHOXAZOLE AND TRIMETHOPRIM [Suspect]

REACTIONS (10)
  - SEPSIS [None]
  - NIKOLSKY'S SIGN [None]
  - STEVENS-JOHNSON SYNDROME [None]
  - GENERALISED ERYTHEMA [None]
  - RASH VESICULAR [None]
  - ORAL MUCOSA EROSION [None]
  - PULMONARY HAEMORRHAGE [None]
  - CONJUNCTIVITIS [None]
  - GENITAL EROSION [None]
  - CHEILITIS [None]
